FAERS Safety Report 8344618-2 (Version None)
Quarter: 2012Q2

REPORT INFORMATION
  Report Type: 
  Country: None (occurrence: None)
  Receive Date: 20120508
  Receipt Date: 20120502
  Transmission Date: 20120825
  Serious: Yes (Death, Hospitalization, Other)
  Sender: FDA-Public Use
  Company Number: BR-JNJFOC-20120504354

PATIENT
  Sex: Male

DRUGS (1)
  1. ZYTIGA [Suspect]
     Indication: PROSTATE CANCER
     Route: 048
     Dates: start: 20120401

REACTIONS (5)
  - TRANSAMINASES ABNORMAL [None]
  - JAUNDICE [None]
  - METASTASES TO LIVER [None]
  - RESPIRATORY DISORDER [None]
  - RESPIRATORY FAILURE [None]
